FAERS Safety Report 4932051-2 (Version None)
Quarter: 2006Q1

REPORT INFORMATION
  Report Type: 
  Country: None (occurrence: None)
  Receive Date: 20060228
  Receipt Date: 20060207
  Transmission Date: 20060701
  Serious: Yes (Death, Life-Threatening, Other)
  Sender: FDA-Public Use
  Company Number: US200601005317

PATIENT
  Age: 27 Year
  Sex: Female

DRUGS (9)
  1. STRATTERA [Suspect]
     Dosage: 40 MG, DAILY (1/D),
     Dates: start: 20060110
  2. ATENOLOL [Concomitant]
  3. DOXAZOSIN (DOXAZOSIN) [Concomitant]
  4. LISINOPRIL [Concomitant]
  5. FLUOXETINE (R-FLUOXETINE) (FLUOXETINE (R-FLUOXETINE)) [Concomitant]
  6. DEPAKOTE [Concomitant]
  7. METFORMIN HCL [Concomitant]
  8. HYDROCORTISONE [Concomitant]
  9. FLUDROCORTISONE ACETATE [Concomitant]

REACTIONS (10)
  - BACK PAIN [None]
  - CIRCULATORY COLLAPSE [None]
  - CONVULSION [None]
  - DIZZINESS [None]
  - EUPHORIC MOOD [None]
  - FALL [None]
  - LUNG INFILTRATION [None]
  - NECK PAIN [None]
  - PYREXIA [None]
  - VENTRICULAR FIBRILLATION [None]
